FAERS Safety Report 5258869-7 (Version None)
Quarter: 2007Q1

REPORT INFORMATION
  Report Type: 
  Country: None (occurrence: None)
  Receive Date: 20070306
  Receipt Date: 20070306
  Transmission Date: 20070707
  Serious: Yes (Hospitalization)
  Sender: FDA-Public Use
  Company Number: None

PATIENT
  Age: 55 Year
  Sex: Female

DRUGS (3)
  1. TRIFLUOPERAZINE HCL [Suspect]
     Indication: BIPOLAR DISORDER
     Dosage: 30 MG AT BEDTIME PO
     Route: 048
  2. PAROXETINE HCL [Concomitant]
  3. CLONAZEPAM [Concomitant]

REACTIONS (1)
  - NEUROLEPTIC MALIGNANT SYNDROME [None]
